FAERS Safety Report 25506146 (Version 4)
Quarter: 2025Q4

REPORT INFORMATION
  Report Type: Spontaneous
  Country: US (occurrence: US)
  Receive Date: 20250702
  Receipt Date: 20251130
  Transmission Date: 20260117
  Serious: No
  Sender: SANOFI AVENTIS
  Company Number: US-SA-2025SA185776

PATIENT
  Age: 61 Year
  Sex: Male

DRUGS (2)
  1. DUPIXENT [Suspect]
     Active Substance: DUPILUMAB
     Indication: Neurodermatitis
     Dosage: 2 DF, 1X
     Route: 065
     Dates: start: 202506, end: 202506
  2. DUPIXENT [Suspect]
     Active Substance: DUPILUMAB
     Dosage: 300 MG, QOW
     Route: 065
     Dates: start: 2025

REACTIONS (18)
  - Burning sensation [Unknown]
  - Wound [Recovering/Resolving]
  - Muscular weakness [Unknown]
  - Limb discomfort [Unknown]
  - Pain [Unknown]
  - Dyspnoea [Unknown]
  - Asthenia [Unknown]
  - Somnolence [Unknown]
  - Anal pruritus [Unknown]
  - Injection site scab [Unknown]
  - Injection site vesicles [Unknown]
  - Dizziness [Unknown]
  - Pruritus [Unknown]
  - Myalgia [Unknown]
  - Vision blurred [Unknown]
  - Abdominal pain [Unknown]
  - Arthralgia [Unknown]
  - Extra dose administered [Unknown]

NARRATIVE: CASE EVENT DATE: 20250101
